FAERS Safety Report 12085105 (Version 3)
Quarter: 2018Q1

REPORT INFORMATION
  Report Type: Report from Study
  Country: GB (occurrence: GB)
  Receive Date: 20160217
  Receipt Date: 20180316
  Transmission Date: 20180508
  Serious: Yes (Other)
  Sender: FDA-Public Use
  Company Number: GB-JNJFOC-20160214182

PATIENT
  Age: 68 Year
  Sex: Male

DRUGS (2)
  1. RIVAROXABAN [Suspect]
     Active Substance: RIVAROXABAN
     Indication: NEOPLASM MALIGNANT
     Route: 048
     Dates: start: 20151231, end: 20160205
  2. RIVAROXABAN [Suspect]
     Active Substance: RIVAROXABAN
     Indication: EMBOLISM VENOUS
     Route: 048
     Dates: start: 20151231, end: 20160205

REACTIONS (5)
  - Lower gastrointestinal haemorrhage [Recovered/Resolved]
  - Angina pectoris [Unknown]
  - Constipation [Unknown]
  - Angina pectoris [Unknown]
  - Abdominal pain [Unknown]

NARRATIVE: CASE EVENT DATE: 20160206
